FAERS Safety Report 4377699-1 (Version None)
Quarter: 2004Q2

REPORT INFORMATION
  Report Type: 
  Country: None (occurrence: None)
  Receive Date: 20040608
  Receipt Date: 20040527
  Transmission Date: 20050107
  Serious: No
  Sender: FDA-Public Use
  Company Number: 04P-167-0253234-00

PATIENT
  Age: 76 Year
  Sex: Female
  Weight: 70 kg

DRUGS (4)
  1. BIAXIN [Suspect]
     Indication: LOWER RESPIRATORY TRACT INFECTION
     Dosage: 500 MG, 2 IN 1 D, INTRAVENOUS
     Route: 042
     Dates: start: 20040306, end: 20040309
  2. OXALIPLATIN [Concomitant]
  3. LOCODAMOL 30/500 [Concomitant]
  4. SODIUM CHLORIDE INJ [Concomitant]

REACTIONS (6)
  - DISCOMFORT [None]
  - INFUSION SITE REACTION [None]
  - INJECTION SITE IRRITATION [None]
  - PAIN IN EXTREMITY [None]
  - PARAESTHESIA [None]
  - VEIN DISORDER [None]
